FAERS Safety Report 20690893 (Version 2)
Quarter: 2022Q2

REPORT INFORMATION
  Report Type: Spontaneous
  Country: JP (occurrence: JP)
  Receive Date: 20220408
  Receipt Date: 20220428
  Transmission Date: 20220721
  Serious: Yes (Other)
  Sender: FDA-Public Use
  Company Number: JP-SA-2022SA114413

PATIENT
  Age: 69 Year

DRUGS (3)
  1. DOCETAXEL [Suspect]
     Active Substance: DOCETAXEL
     Indication: Breast cancer
     Dosage: CYCLES OF DOCETAXEL 75 MG/M2 WITH A 21 DAY INTERVAL
     Route: 065
  2. CYCLOPHOSPHAMIDE\DOXORUBICIN [Concomitant]
     Active Substance: CYCLOPHOSPHAMIDE\DOXORUBICIN
     Indication: Breast cancer
     Dosage: CYCLES OF DOXORUBICIN 60 MG/M2 PLUS CYCLOPHOSPHAMIDE 600 MG/M2 WITH 14 DAYS INTERVAL FOR DDAC
     Route: 065
  3. PEGFILGRASTIM [Concomitant]
     Active Substance: PEGFILGRASTIM
     Indication: Breast cancer
     Dosage: ADMINISTERED TYPICALLY ON DAY 2 OF EACH CYCLE OF DDAC
     Route: 065

REACTIONS (1)
  - Pneumocystis jirovecii pneumonia [Recovered/Resolved]
